FAERS Safety Report 7878933-3 (Version None)
Quarter: 2011Q4

REPORT INFORMATION
  Report Type: 
  Country: None (occurrence: None)
  Receive Date: 20111101
  Receipt Date: 20111018
  Transmission Date: 20120403
  Serious: Yes (Other)
  Sender: FDA-Public Use
  Company Number: US-BAYER-2011-027540

PATIENT
  Age: 33 Year
  Sex: Female
  Weight: 80.59 kg

DRUGS (14)
  1. LAMICTAL [Concomitant]
     Indication: ANXIETY
     Dosage: UNK
     Dates: start: 20070101
  2. WELLBUTRIN [Concomitant]
     Indication: DEPRESSION
     Dosage: UNK
     Dates: start: 20030101, end: 20110101
  3. PREDNISONE [Concomitant]
     Dosage: 20 MG, UNK
     Dates: start: 20090212
  4. ALBUTEROL [Concomitant]
     Indication: BRONCHITIS
     Dosage: UNK
     Dates: start: 19990101
  5. CONCERTA [Concomitant]
     Indication: ATTENTION DEFICIT/HYPERACTIVITY DISORDER
     Dosage: UNK
     Dates: start: 20060101, end: 20090101
  6. FLUCONAZOLE [Concomitant]
     Dosage: 150 MG, UNK
     Dates: start: 20090325, end: 20090401
  7. YAZ [Suspect]
     Indication: CONTRACEPTION
     Dosage: UNK
     Dates: start: 20080901, end: 20100123
  8. CONCERTA [Concomitant]
     Dosage: UNK
     Dates: start: 20090202, end: 20090427
  9. PENICILLIN VK [Concomitant]
     Dosage: 500 MG, UNK
     Dates: start: 20090325, end: 20090404
  10. AMOXICILLIN AND CLAVULANATE POTASSIUM [Concomitant]
     Dosage: 875 MG, UNK
     Dates: start: 20090212
  11. NSAID'S [Concomitant]
     Dosage: UNK
     Dates: start: 19990101
  12. HYDROCODONE BITARTRATE AND ACETAMINOPHEN [Concomitant]
     Dosage: UNK
     Dates: start: 20090212
  13. PROZAC [Concomitant]
     Indication: DEPRESSION
     Dosage: UNK UNK, PRN
     Dates: start: 19990101
  14. FLUCONAZOLE [Concomitant]
     Dosage: 150 MG, UNK
     Dates: start: 20090427, end: 20090504

REACTIONS (11)
  - CHOLECYSTITIS CHRONIC [None]
  - ABDOMINAL PAIN [None]
  - GALLBLADDER CHOLESTEROLOSIS [None]
  - ANXIETY [None]
  - INJURY [None]
  - CHOLECYSTITIS [None]
  - GALLBLADDER INJURY [None]
  - PAIN [None]
  - BILIARY TRACT DISORDER [None]
  - ABDOMINAL PAIN UPPER [None]
  - ANHEDONIA [None]
